FAERS Safety Report 19020418 (Version 3)
Quarter: 2021Q2

REPORT INFORMATION
  Report Type: Report from Study
  Country: US (occurrence: US)
  Receive Date: 20210317
  Receipt Date: 20210420
  Transmission Date: 20210717
  Serious: Yes (Other)
  Sender: FDA-Public Use
  Company Number: US-BAYER-2021-054848

PATIENT
  Age: 69 Year
  Sex: Male

DRUGS (3)
  1. STIVARGA [Suspect]
     Active Substance: REGORAFENIB
     Indication: COLORECTAL CANCER
     Dosage: 120 MG DAILY FOR 21 DASY ON 7 DAYS OFF
     Route: 048
     Dates: start: 202102
  2. GABAPENTIN. [Concomitant]
     Active Substance: GABAPENTIN
     Dosage: UNK
  3. STIVARGA [Suspect]
     Active Substance: REGORAFENIB
     Indication: COLORECTAL CANCER
     Dosage: 80 MG, QD  FOR 21 DAYS ON, 7 OFF
     Route: 048
     Dates: start: 20210121, end: 202102

REACTIONS (11)
  - Hypoaesthesia [Not Recovered/Not Resolved]
  - Paraesthesia [Unknown]
  - Dysphonia [Not Recovered/Not Resolved]
  - Pulmonary thrombosis [None]
  - Fatigue [Not Recovered/Not Resolved]
  - Heart rate increased [Unknown]
  - Weight increased [Not Recovered/Not Resolved]
  - Off label use [None]
  - Peripheral swelling [Recovering/Resolving]
  - Neuropathy peripheral [Not Recovered/Not Resolved]
  - Neuropathy peripheral [Unknown]

NARRATIVE: CASE EVENT DATE: 20210121
